FAERS Safety Report 23386937 (Version 1)
Quarter: 2024Q1

REPORT INFORMATION
  Report Type: Report from Study
  Country: US (occurrence: None)
  Receive Date: 20240110
  Receipt Date: 20240110
  Transmission Date: 20240410
  Serious: Yes (Other)
  Sender: FDA-Public Use
  Company Number: 2024A002575

PATIENT
  Sex: Female

DRUGS (1)
  1. CALQUENCE [Suspect]
     Active Substance: ACALABRUTINIB
     Indication: Chronic lymphocytic leukaemia
     Route: 048
     Dates: start: 20210405

REACTIONS (6)
  - Nephropathy [Unknown]
  - Fatigue [Unknown]
  - Amnesia [Unknown]
  - Renal pain [Unknown]
  - Sleep disorder [Unknown]
  - Protein urine present [Unknown]
